FAERS Safety Report 5059079-9 (Version None)
Quarter: 2006Q3

REPORT INFORMATION
  Report Type: 
  Country: None (occurrence: None)
  Receive Date: 20060718
  Receipt Date: 20060629
  Transmission Date: 20061208
  Serious: Yes (Hospitalization, Other)
  Sender: FDA-Public Use
  Company Number: US200607002089

PATIENT
  Age: 63 Year
  Sex: Male
  Weight: 136.1 kg

DRUGS (3)
  1. HUMALOG [Suspect]
     Dates: end: 20050701
  2. HUMULIN N [Suspect]
     Dates: end: 20050701
  3. BYETTA [Concomitant]

REACTIONS (5)
  - BLOOD GLUCOSE DECREASED [None]
  - CORONARY ARTERY OCCLUSION [None]
  - LOSS OF CONSCIOUSNESS [None]
  - NAUSEA [None]
  - WEIGHT DECREASED [None]
